FAERS Safety Report 14923012 (Version 1)
Quarter: 2018Q2

REPORT INFORMATION
  Report Type: Spontaneous
  Country: US (occurrence: US)
  Receive Date: 20180503
  Receipt Date: 20180503
  Transmission Date: 20180711
  Serious: Yes (Hospitalization)
  Sender: FDA-Public Use
  Company Number: None

PATIENT
  Age: 66 Year
  Sex: Female
  Weight: 64.4 kg

DRUGS (2)
  1. DOCETAXEL 10 MG/ML 16 ML VIAL HOSPIRA [Suspect]
     Active Substance: DOCETAXEL
     Dates: start: 20180501
  2. DOCETAXEL 10 MG/ML 16 ML VIAL HOSPIRA [Suspect]
     Active Substance: DOCETAXEL
     Indication: BREAST CANCER
     Route: 042
     Dates: start: 20180410

REACTIONS (1)
  - Flushing [None]

NARRATIVE: CASE EVENT DATE: 20180501
